FAERS Safety Report 6014128-6 (Version None)
Quarter: 2008Q4

REPORT INFORMATION
  Report Type: 
  Country: None (occurrence: None)
  Receive Date: 20081219
  Receipt Date: 20081113
  Transmission Date: 20090506
  Serious: No
  Sender: FDA-Public Use
  Company Number: A0701010A

PATIENT
  Age: 83 Year
  Sex: Male

DRUGS (9)
  1. AVODART [Suspect]
     Indication: BENIGN PROSTATIC HYPERPLASIA
     Dosage: .5MG PER DAY
     Route: 048
     Dates: start: 20070801
  2. COREG [Suspect]
     Dosage: 3.25MG TWICE PER DAY
     Route: 048
     Dates: start: 20071112, end: 20071128
  3. COREG CR [Suspect]
     Dosage: 10MG PER DAY
     Route: 048
     Dates: start: 20071211, end: 20071223
  4. CRESTOR [Concomitant]
  5. ASPIRIN [Concomitant]
  6. PLAVIX [Concomitant]
  7. HUMALOG [Concomitant]
  8. LANTUS [Concomitant]
  9. OXYBUTYNIN CHLORIDE [Concomitant]

REACTIONS (13)
  - ABDOMINAL DISCOMFORT [None]
  - ASTHENIA [None]
  - BLOOD THYROID STIMULATING HORMONE INCREASED [None]
  - DIARRHOEA [None]
  - FAECES DISCOLOURED [None]
  - FATIGUE [None]
  - FREQUENT BOWEL MOVEMENTS [None]
  - INSOMNIA [None]
  - LOCALISED INFECTION [None]
  - NOCTURIA [None]
  - POLLAKIURIA [None]
  - URINE OUTPUT INCREASED [None]
  - WEIGHT DECREASED [None]
